FAERS Safety Report 13591398 (Version 6)
Quarter: 2017Q3

REPORT INFORMATION
  Report Type: Spontaneous
  Country: US (occurrence: US)
  Receive Date: 20170529
  Receipt Date: 20170713
  Transmission Date: 20171127
  Serious: Yes (Hospitalization)
  Sender: FDA-Public Use
  Company Number: US-PFIZER INC-2017215597

PATIENT
  Age: 57 Year
  Sex: Male
  Weight: 60 kg

DRUGS (8)
  1. IBUPROFEN. [Concomitant]
     Active Substance: IBUPROFEN
     Indication: PAIN
     Dosage: 800 MG, AS NEEDED (4 PILLS AS NEEDED)
     Dates: start: 201704, end: 20170521
  2. SUTENT [Suspect]
     Active Substance: SUNITINIB MALATE
     Indication: RENAL CELL CARCINOMA STAGE IV
     Dosage: 50 MG, CYCLIC (2 WEEKS ON AND 1 WEEK OFF)
  3. GAS-X [Concomitant]
     Active Substance: DIMETHICONE
     Dosage: OCCASIONAL
  4. ZOFRAN [Concomitant]
     Active Substance: ONDANSETRON HYDROCHLORIDE
     Dosage: UNK
  5. SUTENT [Suspect]
     Active Substance: SUNITINIB MALATE
     Dosage: 50 MG, CYCLIC (2 WEEKS ON AND 1 WEEK OFF)
     Dates: start: 20170516
  6. SUTENT [Suspect]
     Active Substance: SUNITINIB MALATE
     Dosage: 50 MG, CYCLIC (2 WEEKS ON AND 1 WEEK OFF)
     Dates: start: 20170517, end: 20170616
  7. HYDROCODONE [Concomitant]
     Active Substance: HYDROCODONE
     Indication: PAIN
     Dosage: 5 MG, 4X/DAY
     Dates: start: 201704, end: 20170521
  8. MIRALAX [Concomitant]
     Active Substance: POLYETHYLENE GLYCOL 3350
     Dosage: UNK

REACTIONS (15)
  - Neoplasm progression [Unknown]
  - Decreased appetite [Unknown]
  - Haematemesis [Unknown]
  - Abdominal pain lower [Not Recovered/Not Resolved]
  - Dysgeusia [Unknown]
  - Flatulence [Unknown]
  - Platelet count decreased [Unknown]
  - Back pain [Not Recovered/Not Resolved]
  - Chromaturia [Unknown]
  - Dyspnoea [Not Recovered/Not Resolved]
  - Renal disorder [Unknown]
  - Hepatic cyst [Unknown]
  - Constipation [Recovered/Resolved]
  - Yellow skin [Unknown]
  - Nausea [Unknown]

NARRATIVE: CASE EVENT DATE: 201705
